FAERS Safety Report 17807650 (Version 2)
Quarter: 2020Q3

REPORT INFORMATION
  Report Type: Spontaneous
  Country: US (occurrence: US)
  Receive Date: 20200520
  Receipt Date: 20200727
  Transmission Date: 20201102
  Serious: No
  Sender: FDA-Public Use
  Company Number: US-SA-2020SA129730

PATIENT

DRUGS (3)
  1. DUPIXENT [Suspect]
     Active Substance: DUPILUMAB
     Indication: DERMATITIS ATOPIC
     Dosage: 300 MG, QOW
     Route: 058
     Dates: start: 20191213
  2. CELEBREX [Concomitant]
     Active Substance: CELECOXIB
  3. VIAGRA [SILDENAFIL CITRATE] [Concomitant]

REACTIONS (4)
  - Erythema [Recovering/Resolving]
  - Dermatitis atopic [Unknown]
  - Sleep disorder [Unknown]
  - Pruritus [Recovering/Resolving]

NARRATIVE: CASE EVENT DATE: 20200510
